FAERS Safety Report 14244393 (Version 1)
Quarter: 2017Q4

REPORT INFORMATION
  Report Type: Spontaneous
  Country: US (occurrence: US)
  Receive Date: 20171201
  Receipt Date: 20171201
  Transmission Date: 20180321
  Serious: Yes (Death, Hospitalization)
  Sender: FDA-Public Use
  Company Number: US-ALKERMES INC.-ALK-2017-005068

PATIENT
  Age: 18 Year
  Sex: Female

DRUGS (2)
  1. VIVITROL [Suspect]
     Active Substance: NALTREXONE
     Indication: DRUG DEPENDENCE
     Dosage: 380 MG, QMO
     Route: 030
  2. VIVITROL [Suspect]
     Active Substance: NALTREXONE
     Dosage: 380 MG, Q3WK
     Route: 030

REACTIONS (6)
  - Suicidal behaviour [Unknown]
  - Treatment noncompliance [Unknown]
  - Overdose [Fatal]
  - Off label use [Recovered/Resolved]
  - Drug diversion [Unknown]
  - Drug dependence [Unknown]
